FAERS Safety Report 10199082 (Version 1)
Quarter: 2014Q2

REPORT INFORMATION
  Report Type: Report from Study
  Country: GB (occurrence: GB)
  Receive Date: 20140527
  Receipt Date: 20140527
  Transmission Date: 20141212
  Serious: Yes (Other)
  Sender: FDA-Public Use
  Company Number: GB-ABBVIE-14P-167-1239337-00

PATIENT
  Sex: Male

DRUGS (3)
  1. HUMIRA [Suspect]
     Indication: PSORIASIS
     Dates: start: 20120716
  2. HUMIRA [Suspect]
  3. HUMIRA [Suspect]
     Dates: end: 20120831

REACTIONS (2)
  - Diabetes mellitus [Unknown]
  - Osteomyelitis [Unknown]
